FAERS Safety Report 7708342-9 (Version None)
Quarter: 2011Q3

REPORT INFORMATION
  Report Type: 
  Country: None (occurrence: None)
  Receive Date: 20110825
  Receipt Date: 20110818
  Transmission Date: 20111222
  Serious: Yes (Other)
  Sender: FDA-Public Use
  Company Number: CN-AMGEN-CHNSP2011042312

PATIENT
  Age: 34 Year
  Sex: Male

DRUGS (1)
  1. ENBREL [Suspect]
     Indication: ANKYLOSING SPONDYLITIS
     Dosage: ONE VIAL TWICE A WEEK
     Dates: start: 20110501

REACTIONS (4)
  - INJECTION SITE ERYTHEMA [None]
  - RESPIRATORY DISTRESS [None]
  - INJECTION SITE PRURITUS [None]
  - DEAFNESS [None]
